FAERS Safety Report 16586259 (Version 3)
Quarter: 2019Q3

REPORT INFORMATION
  Report Type: Spontaneous
  Country: IT (occurrence: IT)
  Receive Date: 20190717
  Receipt Date: 20190930
  Transmission Date: 20191004
  Serious: Yes (Other)
  Sender: FDA-Public Use
  Company Number: IT-TEVA-2019-IT-1077439

PATIENT
  Age: 58 Year
  Sex: Male
  Weight: 68 kg

DRUGS (7)
  1. FLUOROURACILE TEVA [Suspect]
     Active Substance: FLUOROURACIL
     Indication: PANCREATIC CARCINOMA
     Dosage: 3186 MG
     Route: 042
     Dates: start: 20181001, end: 20190617
  2. DEXAMETHASONE. [Concomitant]
     Active Substance: DEXAMETHASONE
     Route: 065
  3. OXALIPLATINO SUN PHARMACEUTICAL INDUSTRIES EUROPE [Suspect]
     Active Substance: OXALIPLATIN
     Indication: PANCREATIC CARCINOMA
     Dosage: OXALIPLATINO SUN PHARMACEUTICAL INDUSTRIES EUROPE
     Route: 042
     Dates: start: 20181001, end: 20190617
  4. FLUOROURACILE TEVA [Suspect]
     Active Substance: FLUOROURACIL
     Dosage: 531 MG
     Route: 040
     Dates: start: 20181001, end: 20190617
  5. ATROPINE. [Concomitant]
     Active Substance: ATROPINE
     Route: 065
  6. IRINOTECAN HYDROCHLORIDE TRIHYDRATE [Suspect]
     Active Substance: IRINOTECAN HYDROCHLORIDE
     Indication: PANCREATIC CARCINOMA
     Dosage: 239 MG
     Route: 042
     Dates: start: 20181001, end: 20190617
  7. RANITIDINE HYDROCHLORIDE. [Concomitant]
     Active Substance: RANITIDINE HYDROCHLORIDE
     Route: 065

REACTIONS (1)
  - Hypertransaminasaemia [Recovering/Resolving]

NARRATIVE: CASE EVENT DATE: 20190628
